FAERS Safety Report 14852975 (Version 1)
Quarter: 2018Q2

REPORT INFORMATION
  Report Type: Report from Study
  Country: US (occurrence: US)
  Receive Date: 20180507
  Receipt Date: 20180507
  Transmission Date: 20180711
  Serious: Yes (Hospitalization)
  Sender: FDA-Public Use
  Company Number: US-BAYER-2018-081943

PATIENT
  Age: 33 Year
  Sex: Female
  Weight: 47.62 kg

DRUGS (2)
  1. ADEMPAS [Suspect]
     Active Substance: RIOCIGUAT
     Indication: PULMONARY ARTERIAL HYPERTENSION
     Dosage: 0.5 MG, TID
     Route: 048
     Dates: start: 20180329
  2. WARFARIN [Concomitant]
     Active Substance: WARFARIN
     Dosage: UNK

REACTIONS (4)
  - Abdominal distension [Not Recovered/Not Resolved]
  - Hospitalisation [None]
  - Diarrhoea [None]
  - Paracentesis [None]

NARRATIVE: CASE EVENT DATE: 20180419
